FAERS Safety Report 7909397-9 (Version None)
Quarter: 2011Q4

REPORT INFORMATION
  Report Type: 
  Country: None (occurrence: None)
  Receive Date: 20111111
  Receipt Date: 20111108
  Transmission Date: 20120403
  Serious: Yes (Hospitalization, Other)
  Sender: FDA-Public Use
  Company Number: US-PFIZER INC-2011147788

PATIENT
  Sex: Male

DRUGS (3)
  1. SU-TUSS HD [Concomitant]
     Indication: COUGH
     Dosage: UNK
     Dates: start: 20001222, end: 20110420
  2. CHANTIX [Suspect]
     Indication: SMOKING CESSATION THERAPY
     Dosage: STARTING MONTH PACK AND CONTINUATION PACK
     Dates: start: 20090520, end: 20090722
  3. ZITHROMAX [Concomitant]
     Indication: ANTIBIOTIC THERAPY
     Dosage: UNK
     Dates: start: 20001222, end: 20110420

REACTIONS (10)
  - DEPRESSION [None]
  - MOBILITY DECREASED [None]
  - CONVULSION [None]
  - WRIST FRACTURE [None]
  - ARTHRALGIA [None]
  - AGITATION [None]
  - SYNCOPE [None]
  - MOOD ALTERED [None]
  - ABNORMAL DREAMS [None]
  - ABNORMAL BEHAVIOUR [None]
